FAERS Safety Report 10129251 (Version 1)
Quarter: 2014Q2

REPORT INFORMATION
  Report Type: Spontaneous
  Country: US (occurrence: US)
  Receive Date: 20140428
  Receipt Date: 20140428
  Transmission Date: 20141212
  Serious: No
  Sender: FDA-Public Use
  Company Number: US-ABBVIE-14P-163-1207012-00

PATIENT
  Age: 63 Year
  Sex: Male
  Weight: 204.3 kg

DRUGS (7)
  1. ANDROGEL [Suspect]
     Indication: BLOOD TESTOSTERONE DECREASED
     Dosage: 2 PUMPS
     Route: 061
     Dates: start: 201401
  2. METHADONE [Concomitant]
     Indication: ARTHRALGIA
  3. OXYCODONE [Concomitant]
     Indication: ARTHRALGIA
  4. SIMVASTATIN [Concomitant]
     Indication: BLOOD CHOLESTEROL INCREASED
  5. ALLOPURINOL [Concomitant]
     Indication: GOUT
  6. COLCRYS [Concomitant]
     Indication: GOUT
  7. FUROSEMIDE [Concomitant]
     Indication: LYMPHOEDEMA

REACTIONS (3)
  - Application site rash [Not Recovered/Not Resolved]
  - Application site acne [Not Recovered/Not Resolved]
  - Application site pruritus [Not Recovered/Not Resolved]
